FAERS Safety Report 8544273-2 (Version None)
Quarter: 2012Q3

REPORT INFORMATION
  Report Type: 
  Country: None (occurrence: None)
  Receive Date: 20120727
  Receipt Date: 20120504
  Transmission Date: 20120928
  Serious: Yes (Death)
  Sender: FDA-Public Use
  Company Number: US-009507513-2012SP027804

PATIENT

DRUGS (6)
  1. CLARITIN-D 24 HOUR [Suspect]
     Indication: EYE PRURITUS
  2. CLARITIN-D 24 HOUR [Suspect]
     Indication: SNEEZING
  3. CLARITIN-D 24 HOUR [Suspect]
     Indication: NASAL CONGESTION
  4. CLARITIN-D 24 HOUR [Suspect]
     Indication: MEDICAL OBSERVATION
  5. CLARITIN-D 24 HOUR [Suspect]
     Indication: SEASONAL ALLERGY
     Dosage: 10 MG, ONCE
     Route: 048
     Dates: start: 20120417
  6. CLARITIN-D 24 HOUR [Suspect]
     Indication: ALLERGY TO ANIMAL

REACTIONS (2)
  - EUPHORIC MOOD [None]
  - SOMNOLENCE [None]
